FAERS Safety Report 13171010 (Version 1)
Quarter: 2017Q1

REPORT INFORMATION
  Report Type: Not Available
  Country: None (occurrence: US)
  Receive Date: 20170131
  Receipt Date: 20170131
  Transmission Date: 20170428
  Serious: No
  Sender: FDA-Public Use
  Company Number: US-AKORN-48718

PATIENT

DRUGS (1)
  1. ERYTHROMYCIN OPHTHALMIC OINTMENT USP, 0.5% [Suspect]
     Active Substance: ERYTHROMYCIN

REACTIONS (1)
  - Hypersensitivity [None]
